FAERS Safety Report 8282586-2 (Version None)
Quarter: 2012Q2

REPORT INFORMATION
  Report Type: 
  Country: None (occurrence: None)
  Receive Date: 20120410
  Receipt Date: 20120329
  Transmission Date: 20120825
  Serious: Yes (Other)
  Sender: FDA-Public Use
  Company Number: 2007US002683

PATIENT
  Age: 83 Year
  Sex: Male
  Weight: 89 kg

DRUGS (12)
  1. VESICARE [Suspect]
     Indication: HYPERTONIC BLADDER
     Dosage: 5;10;15 MG, UID/QD, ORAL
     Route: 048
     Dates: start: 20071101, end: 20071115
  2. VESICARE [Suspect]
     Indication: HYPERTONIC BLADDER
     Dosage: 5;10;15 MG, UID/QD, ORAL
     Route: 048
     Dates: start: 20071115
  3. VESICARE [Suspect]
     Indication: HYPERTONIC BLADDER
     Dosage: 5;10;15 MG, UID/QD, ORAL
     Route: 048
     Dates: start: 20090101
  4. VESICARE [Suspect]
     Indication: HYPERTONIC BLADDER
     Dosage: 5;10;15 MG, UID/QD, ORAL
     Route: 048
     Dates: start: 20070801, end: 20071101
  5. PLAVIX [Concomitant]
  6. LUTEIN (XANTOFYL) [Concomitant]
  7. 5-FU (FLUOROURACIL SODIUM) [Concomitant]
  8. MULTIVITAMIN [Concomitant]
  9. AVODART [Concomitant]
  10. FISH OIL (FISH OIL) [Concomitant]
  11. VITAMIN B6 [Concomitant]
  12. ACETAMINOPHEN [Concomitant]

REACTIONS (7)
  - INAPPROPRIATE SCHEDULE OF DRUG ADMINISTRATION [None]
  - GLAUCOMA [None]
  - CATARACT [None]
  - DRUG INEFFECTIVE [None]
  - OVERDOSE [None]
  - WRONG TECHNIQUE IN DRUG USAGE PROCESS [None]
  - DRY EYE [None]
